FAERS Safety Report 8185552-0 (Version None)
Quarter: 2012Q1

REPORT INFORMATION
  Report Type: 
  Country: None (occurrence: None)
  Receive Date: 20120305
  Receipt Date: 20120202
  Transmission Date: 20120608
  Serious: Yes (Other)
  Sender: FDA-Public Use
  Company Number: BR-ELI_LILLY_AND_COMPANY-BR201010005255

PATIENT
  Sex: Female
  Weight: 67 kg

DRUGS (11)
  1. XOLAIR [Concomitant]
     Indication: ASTHMA
     Dosage: UNK, UNKNOWN
     Route: 058
  2. CLONAZEPAM [Concomitant]
     Indication: ANXIETY
     Dosage: 2 MG, DAILY (1/D)
     Route: 048
     Dates: start: 20090101
  3. FORMOTEROL FUMARATE [Concomitant]
     Indication: ASTHMA
     Dosage: UNK, 2/D
     Route: 065
  4. FORTEO [Suspect]
     Dosage: 20 UG, DAILY (1/D)
     Route: 058
  5. CORTICOSTEROIDS [Concomitant]
     Dosage: UNK, UNKNOWN
     Route: 065
  6. SINVASTATINA [Concomitant]
     Indication: BLOOD CHOLESTEROL
     Dosage: UNK, DAILY (1/D)
     Route: 048
     Dates: start: 20100901
  7. FORTEO [Suspect]
     Indication: OSTEOPOROSIS
     Dosage: 20 UG, DAILY (1/D)
     Route: 058
     Dates: start: 20070101
  8. CYCLOBENZAPRINE HCL [Concomitant]
     Indication: PAIN
     Dosage: 10 MG, UNKNOWN
     Route: 048
  9. ALBUTEROL [Concomitant]
     Indication: ASTHMA
     Dosage: UNK, AS NEEDED
     Route: 055
  10. BUSONID [Concomitant]
     Indication: ASTHMA
     Dosage: UNK, 2/D
     Route: 065
  11. BECLOMETHASONE DIPROPIONATE [Concomitant]
     Indication: SINUSITIS
     Dosage: UNK, DAILY (1/D)
     Route: 045

REACTIONS (8)
  - DEVICE DISLOCATION [None]
  - CHEST PAIN [None]
  - WEIGHT INCREASED [None]
  - PAIN [None]
  - PATHOLOGICAL FRACTURE [None]
  - BACK PAIN [None]
  - BLOOD CHOLESTEROL INCREASED [None]
  - INCORRECT DRUG ADMINISTRATION DURATION [None]
